FAERS Safety Report 14105067 (Version 1)
Quarter: 2017Q4

REPORT INFORMATION
  Report Type: Spontaneous
  Country: CN (occurrence: CN)
  Receive Date: 20171018
  Receipt Date: 20171018
  Transmission Date: 20180321
  Serious: Yes (Other)
  Sender: FDA-Public Use
  Company Number: CN-PFIZER INC-2017443628

PATIENT
  Sex: Female

DRUGS (2)
  1. ZOLOFT [Suspect]
     Active Substance: SERTRALINE HYDROCHLORIDE
     Dosage: 0.25 TABLETS, ALTERNATE DAY
     Route: 048
  2. ZOLOFT [Suspect]
     Active Substance: SERTRALINE HYDROCHLORIDE
     Dosage: 0.5 TABLETS, DAILY
     Route: 048

REACTIONS (5)
  - Mania [Not Recovered/Not Resolved]
  - Aggression [Unknown]
  - Hallucination [Unknown]
  - Disorganised speech [Unknown]
  - Labile blood pressure [Recovered/Resolved]
